FAERS Safety Report 23185609 (Version 1)
Quarter: 2023Q4

REPORT INFORMATION
  Report Type: Report from Study
  Country: CA (occurrence: CA)
  Receive Date: 20231115
  Receipt Date: 20231115
  Transmission Date: 20240110
  Serious: Yes (Hospitalization, Other)
  Sender: FDA-Public Use
  Company Number: CA-ALXN-A201913591

PATIENT
  Sex: Female

DRUGS (9)
  1. SOLIRIS [Suspect]
     Active Substance: ECULIZUMAB
     Indication: Atypical haemolytic uraemic syndrome
     Dosage: 300 MG, Q2W
     Route: 042
     Dates: start: 20151209, end: 20170911
  2. SOLIRIS [Suspect]
     Active Substance: ECULIZUMAB
     Dosage: 600 MG, Q3W
     Route: 042
     Dates: start: 20170925
  3. ENALAPRIL [Concomitant]
     Active Substance: ENALAPRIL
     Indication: Hypertension
     Dosage: 2 UNK, QD
     Route: 048
     Dates: start: 20151229, end: 20160128
  4. ENALAPRIL [Concomitant]
     Active Substance: ENALAPRIL
     Dosage: 2.5 UNK, QD
     Route: 048
     Dates: start: 20160212, end: 20160306
  5. ENALAPRIL [Concomitant]
     Active Substance: ENALAPRIL
     Dosage: 3 MG, BID
     Route: 048
     Dates: start: 20160307
  6. AMLODIPINE [Concomitant]
     Active Substance: AMLODIPINE BESYLATE
     Indication: Hypertension
     Dosage: 3 MILLIGRAM, BID
     Route: 048
     Dates: start: 20151217
  7. FOLIC ACID [Concomitant]
     Active Substance: FOLIC ACID
     Indication: Prophylaxis
     Dosage: 1 MG, QD
     Route: 048
     Dates: start: 20151113
  8. FERROUS SULFATE [Concomitant]
     Active Substance: FERROUS SULFATE
     Indication: Prophylaxis
     Dosage: 2 ML, QD WITH LUNCH
     Route: 048
     Dates: start: 20170217
  9. HYDROCHLOROTHIAZIDE [Concomitant]
     Active Substance: HYDROCHLOROTHIAZIDE
     Indication: Product used for unknown indication
     Dosage: 6.25 MG, QD
     Route: 048
     Dates: start: 20160317

REACTIONS (3)
  - Acute kidney injury [Recovered/Resolved]
  - Dehydration [Recovered/Resolved]
  - Pneumonia [Recovered/Resolved]

NARRATIVE: CASE EVENT DATE: 20190111
